FAERS Safety Report 12210033 (Version 1)
Quarter: 2016Q1

REPORT INFORMATION
  Report Type: Spontaneous
  Country: US (occurrence: None)
  Receive Date: 20160324
  Receipt Date: 20160324
  Transmission Date: 20160526
  Serious: No
  Sender: FDA-Public Use
  Company Number: None

PATIENT
  Age: 55 Year
  Sex: Female

DRUGS (1)
  1. SOVALDI [Suspect]
     Active Substance: SOFOSBUVIR
     Dosage: ORAL 047 ORAL
     Route: 048
     Dates: start: 20160112

REACTIONS (3)
  - Nausea [None]
  - Fatigue [None]
  - Crying [None]

NARRATIVE: CASE EVENT DATE: 20160322
